FAERS Safety Report 8136981-2 (Version None)
Quarter: 2012Q1

REPORT INFORMATION
  Report Type: 
  Country: None (occurrence: None)
  Receive Date: 20120214
  Receipt Date: 20120207
  Transmission Date: 20120608
  Serious: Yes (Other)
  Sender: FDA-Public Use
  Company Number: US-ASTRAZENECA-2012SE08752

PATIENT
  Sex: Male

DRUGS (1)
  1. CRESTOR [Suspect]
     Route: 048
     Dates: start: 20111201, end: 20120101

REACTIONS (6)
  - RENAL IMPAIRMENT [None]
  - COUGH [None]
  - EPISTAXIS [None]
  - ASTHENIA [None]
  - PLATELET COUNT DECREASED [None]
  - DYSPNOEA [None]
